FAERS Safety Report 4294277-3 (Version None)
Quarter: 2004Q1

REPORT INFORMATION
  Report Type: 
  Country: None (occurrence: None)
  Receive Date: 20040211
  Receipt Date: 20030804
  Transmission Date: 20041129
  Serious: No
  Sender: FDA-Public Use
  Company Number: US-GLAXOSMITHKLINE-A0420283A

PATIENT
  Age: 67 Year
  Sex: Female

DRUGS (7)
  1. LAMICTAL [Suspect]
     Dosage: 100MG TWICE PER DAY
     Route: 048
     Dates: start: 20030401
  2. RYTHMOL [Concomitant]
  3. NORVASC [Concomitant]
  4. HYDROCHLOROTHIAZIDE [Concomitant]
  5. PLAVIX [Concomitant]
  6. ISOSORBIDE [Concomitant]
  7. ATENOLOL [Concomitant]

REACTIONS (5)
  - BACK PAIN [None]
  - BLOOD URINE [None]
  - KIDNEY INFECTION [None]
  - NEPHROLITHIASIS [None]
  - TREMOR [None]
